FAERS Safety Report 25475508 (Version 3)
Quarter: 2025Q3

REPORT INFORMATION
  Report Type: Report from Study
  Country: US (occurrence: US)
  Receive Date: 20250624
  Receipt Date: 20250829
  Transmission Date: 20251021
  Serious: Yes (Other)
  Sender: MALLINCKRODT
  Company Number: US-MALLINCKRODT-MNK202500326

PATIENT
  Sex: Female

DRUGS (7)
  1. CORTICOTROPIN [Suspect]
     Active Substance: CORTICOTROPIN
     Indication: Keratitis
  2. CORTICOTROPIN [Suspect]
     Active Substance: CORTICOTROPIN
  3. PATADAY [Concomitant]
     Active Substance: OLOPATADINE HYDROCHLORIDE
  4. RETAIN [Concomitant]
  5. DIETARY SUPPLEMENT [Concomitant]
     Active Substance: DIETARY SUPPLEMENT
  6. METHOTREXATE [Concomitant]
     Active Substance: METHOTREXATE
     Indication: Inflammation
  7. METHOTREXATE [Concomitant]
     Active Substance: METHOTREXATE

REACTIONS (9)
  - Cataract [Unknown]
  - Dry eye [Unknown]
  - Anxiety [Unknown]
  - Eye allergy [Unknown]
  - Visual impairment [Unknown]
  - Blood pressure abnormal [Unknown]
  - Acrochordon [Unknown]
  - Stress [Unknown]
  - Insomnia [Unknown]
